FAERS Safety Report 21734498 (Version 1)
Quarter: 2022Q4

REPORT INFORMATION
  Report Type: Spontaneous
  Country: US (occurrence: US)
  Receive Date: 20221215
  Receipt Date: 20221215
  Transmission Date: 20230113
  Serious: No
  Sender: FDA-Public Use
  Company Number: US-PFIZER INC-2019525302

PATIENT
  Age: 67 Year
  Sex: Female

DRUGS (2)
  1. XELJANZ XR [Suspect]
     Active Substance: TOFACITINIB CITRATE
     Indication: Rheumatoid arthritis
     Dosage: 11 MG, DAILY
  2. METHOTREXATE SODIUM [Suspect]
     Active Substance: METHOTREXATE SODIUM
     Dosage: 20 MG, WEEKLY (20 MG ONCE A WEEK)

REACTIONS (8)
  - Musculoskeletal discomfort [Recovering/Resolving]
  - Musculoskeletal discomfort [Recovering/Resolving]
  - Joint injury [Unknown]
  - Joint injury [Recovering/Resolving]
  - Osteoarthritis [Unknown]
  - Spondylolisthesis [Unknown]
  - Headache [Not Recovered/Not Resolved]
  - Musculoskeletal stiffness [Unknown]
